FAERS Safety Report 23475454 (Version 1)
Quarter: 2024Q1

REPORT INFORMATION
  Report Type: Report from Study
  Country: US (occurrence: US)
  Receive Date: 20240204
  Receipt Date: 20240204
  Transmission Date: 20240409
  Serious: No
  Sender: FDA-Public Use
  Company Number: US-EXELIXIS-CABO-23059685

PATIENT
  Sex: Male

DRUGS (1)
  1. CABOMETYX [Suspect]
     Active Substance: CABOZANTINIB S-MALATE
     Indication: Renal cancer
     Dosage: 40 MG, QD

REACTIONS (6)
  - Tenderness [Unknown]
  - Skin exfoliation [Unknown]
  - Gait disturbance [Unknown]
  - Dyspnoea [Unknown]
  - Rash [Unknown]
  - Vomiting [Unknown]
